FAERS Safety Report 4347897-1 (Version None)
Quarter: 2004Q2

REPORT INFORMATION
  Report Type: 
  Country: None (occurrence: None)
  Receive Date: 20040422
  Receipt Date: 20040407
  Transmission Date: 20050107
  Serious: Yes (Death)
  Sender: FDA-Public Use
  Company Number: USA-2004-0014613

PATIENT
  Age: 58 Year
  Sex: Female

DRUGS (1)
  1. MORPHINE SULFATE [Suspect]
     Indication: PAIN
     Dosage: 20 MG/ML, SEE TEXT
     Dates: start: 20040330

REACTIONS (3)
  - DYSPHAGIA [None]
  - LUNG CANCER METASTATIC [None]
  - MALIGNANT NEOPLASM PROGRESSION [None]
